FAERS Safety Report 6152189-4 (Version None)
Quarter: 2009Q2

REPORT INFORMATION
  Report Type: 
  Country: None (occurrence: None)
  Receive Date: 20090410
  Receipt Date: 20080416
  Transmission Date: 20091009
  Serious: No
  Sender: FDA-Public Use
  Company Number: US-ASTRAZENECA-2008UW05409

PATIENT
  Age: 65 Year
  Sex: Female

DRUGS (7)
  1. ATENOLOL [Suspect]
     Route: 048
  2. PREVACID [Concomitant]
  3. TIKOSYN [Concomitant]
  4. AMLODIPINE [Concomitant]
  5. FUROSEMIDE [Concomitant]
  6. ZOLOFT [Concomitant]
  7. KLOR-CON [Concomitant]

REACTIONS (4)
  - HAEMORRHAGE [None]
  - HEADACHE [None]
  - MUSCLE SPASMS [None]
  - OEDEMA [None]
